FAERS Safety Report 25328102 (Version 2)
Quarter: 2025Q4

REPORT INFORMATION
  Report Type: Spontaneous
  Country: US (occurrence: US)
  Receive Date: 20250518
  Receipt Date: 20251001
  Transmission Date: 20260118
  Serious: No
  Sender: SANOFI AVENTIS
  Company Number: US-SA-2025SA140046

PATIENT
  Age: 64 Year
  Sex: Male

DRUGS (2)
  1. DUPIXENT [Suspect]
     Active Substance: DUPILUMAB
     Indication: Dermatitis atopic
     Dosage: 300 MG, QOW
     Route: 058
     Dates: start: 202502
  2. LOSARTAN [Concomitant]
     Active Substance: LOSARTAN
     Dosage: UNK

REACTIONS (3)
  - Discomfort [Unknown]
  - Vitreous floaters [Unknown]
  - Arthralgia [Unknown]

NARRATIVE: CASE EVENT DATE: 20250101
